FAERS Safety Report 22346035 (Version 1)
Quarter: 2023Q2

REPORT INFORMATION
  Report Type: Spontaneous
  Country: US (occurrence: US)
  Receive Date: 20230519
  Receipt Date: 20230519
  Transmission Date: 20230722
  Serious: Yes (Other)
  Sender: FDA-Public Use
  Company Number: US-VYERA PHARMACEUTICALS, LLC-2023VYE00010

PATIENT
  Sex: Male
  Weight: 80.726 kg

DRUGS (1)
  1. DARAPRIM [Suspect]
     Active Substance: PYRIMETHAMINE
     Indication: Cerebral toxoplasmosis
     Dosage: 75 MG, 1X/DAY
     Route: 048
     Dates: start: 20221114

REACTIONS (2)
  - Monoplegia [Not Recovered/Not Resolved]
  - Pain in extremity [Not Recovered/Not Resolved]
